FAERS Safety Report 5675739-0 (Version None)
Quarter: 2008Q1

REPORT INFORMATION
  Report Type: 
  Country: None (occurrence: None)
  Receive Date: 20080321
  Receipt Date: 20080317
  Transmission Date: 20080703
  Serious: Yes (Other)
  Sender: FDA-Public Use
  Company Number: PHBS2008NL03384

PATIENT
  Age: 61 Year
  Sex: Female
  Weight: 88 kg

DRUGS (1)
  1. DIOVAN [Suspect]
     Indication: HYPERTENSION
     Dosage: 80 MG, QD
     Route: 048
     Dates: start: 20070108, end: 20070521

REACTIONS (2)
  - AMNESIA [None]
  - DISTURBANCE IN ATTENTION [None]
